FAERS Safety Report 5375501-2 (Version None)
Quarter: 2007Q2

REPORT INFORMATION
  Report Type: 
  Country: None (occurrence: None)
  Receive Date: 20070629
  Receipt Date: 20070621
  Transmission Date: 20071010
  Serious: Yes (Other)
  Sender: FDA-Public Use
  Company Number: CA-ABBOTT-07P-028-0371520-00

PATIENT
  Sex: Male
  Weight: 72 kg

DRUGS (2)
  1. MAVIK [Suspect]
     Indication: HYPERTENSION
     Dates: start: 20061019, end: 20070201
  2. CELECOXIB [Concomitant]
     Indication: DRUG USE FOR UNKNOWN INDICATION
     Dates: start: 20061219

REACTIONS (2)
  - LUNG NEOPLASM MALIGNANT [None]
  - METASTASES TO CENTRAL NERVOUS SYSTEM [None]
